FAERS Safety Report 8198615-0 (Version None)
Quarter: 2012Q1

REPORT INFORMATION
  Report Type: 
  Country: None (occurrence: None)
  Receive Date: 20120309
  Receipt Date: 20120301
  Transmission Date: 20120608
  Serious: Yes (Hospitalization)
  Sender: FDA-Public Use
  Company Number: JP-ALLERGAN-1203173US

PATIENT
  Age: 78 Year
  Sex: Male

DRUGS (3)
  1. LUMIGAN [Suspect]
     Indication: GLAUCOMA
     Dosage: 1 GTT, QD
     Route: 047
     Dates: start: 20100827, end: 20110412
  2. TIMOLOL MALEATE [Concomitant]
     Dosage: UNK
     Dates: start: 20090822
  3. AZOPT [Concomitant]
     Dosage: UNK
     Dates: start: 20100325

REACTIONS (1)
  - INTRAOCULAR PRESSURE INCREASED [None]
